FAERS Safety Report 24689492 (Version 1)
Quarter: 2024Q4

REPORT INFORMATION
  Report Type: Spontaneous
  Country: US (occurrence: US)
  Receive Date: 20241203
  Receipt Date: 20241203
  Transmission Date: 20250115
  Serious: No
  Sender: ELI LILLY AND COMPANY
  Company Number: US-ELI_LILLY_AND_COMPANY-US202412000832

PATIENT
  Sex: Male

DRUGS (3)
  1. INSULIN LISPRO [Suspect]
     Active Substance: INSULIN LISPRO
     Indication: Diabetes mellitus
     Dosage: 30 U, UNKNOWN
     Route: 058
  2. JARDIANCE [Concomitant]
     Active Substance: EMPAGLIFLOZIN
     Indication: Product used for unknown indication
  3. SEMGLEE [INSULIN GLARGINE] [Concomitant]
     Indication: Product used for unknown indication

REACTIONS (4)
  - Speech disorder [Recovering/Resolving]
  - Ageusia [Recovering/Resolving]
  - Hypoaesthesia oral [Recovering/Resolving]
  - Incorrect route of product administration [Recovering/Resolving]
